FAERS Safety Report 23793502 (Version 1)
Quarter: 2024Q2

REPORT INFORMATION
  Report Type: Report from Study
  Country: US (occurrence: US)
  Receive Date: 20240429
  Receipt Date: 20240429
  Transmission Date: 20240716
  Serious: Yes (Other)
  Sender: FDA-Public Use
  Company Number: US-MYLANLABS-2024M1036738

PATIENT
  Sex: Female

DRUGS (4)
  1. GABAPENTIN [Suspect]
     Active Substance: GABAPENTIN
     Indication: Product used for unknown indication
     Dosage: UNK
     Route: 065
  2. TUKYSA [Suspect]
     Active Substance: TUCATINIB
     Indication: Breast cancer female
     Dosage: UNK
     Route: 065
  3. TUKYSA [Suspect]
     Active Substance: TUCATINIB
     Dosage: UNK
     Route: 065
  4. CAPECITABINE [Suspect]
     Active Substance: CAPECITABINE
     Indication: Breast cancer female
     Dosage: UNK
     Route: 065

REACTIONS (19)
  - Metastases to central nervous system [Unknown]
  - Metastases to bone [Unknown]
  - Walking aid user [Unknown]
  - Mobility decreased [Unknown]
  - Arthropathy [Unknown]
  - Musculoskeletal disorder [Unknown]
  - Muscle disorder [Unknown]
  - Carpal tunnel syndrome [Unknown]
  - Brain fog [Unknown]
  - Limb injury [Unknown]
  - Pain in extremity [Unknown]
  - Product dose omission issue [Unknown]
  - Product dispensing issue [Unknown]
  - Dry skin [Unknown]
  - Arthralgia [Unknown]
  - Nausea [Unknown]
  - Gait disturbance [Unknown]
  - Diarrhoea [Unknown]
  - Dyspepsia [Unknown]
